FAERS Safety Report 19627048 (Version 1)
Quarter: 2021Q3

REPORT INFORMATION
  Report Type: Spontaneous
  Country: US (occurrence: US)
  Receive Date: 20210728
  Receipt Date: 20210728
  Transmission Date: 20211014
  Serious: No
  Sender: FDA-Public Use
  Company Number: None

PATIENT
  Age: 64 Year
  Sex: Female
  Weight: 81.65 kg

DRUGS (6)
  1. LOVASTATIN. [Concomitant]
     Active Substance: LOVASTATIN
  2. LEVOTHYROXINE. [Concomitant]
     Active Substance: LEVOTHYROXINE
  3. METFORMIN [Concomitant]
     Active Substance: METFORMIN HYDROCHLORIDE
  4. DEXTROAMPHET SACCHARAT, AMPHET ASPARTATE, DEXTROAMPHET SULFATE AND AMPHET SULFAT [Suspect]
     Active Substance: AMPHETAMINE ASPARTATE\AMPHETAMINE SULFATE\DEXTROAMPHETAMINE SACCHARATE\DEXTROAMPHETAMINE SULFATE
     Indication: PRODUCT USED FOR UNKNOWN INDICATION
  5. PROLIXIN [Concomitant]
     Active Substance: FLUPHENAZINE HYDROCHLORIDE
  6. RISPERDONE [Concomitant]
     Active Substance: RISPERIDONE

REACTIONS (2)
  - Drug ineffective [None]
  - Product substitution issue [None]

NARRATIVE: CASE EVENT DATE: 20210601
